FAERS Safety Report 4293914-7 (Version None)
Quarter: 2004Q1

REPORT INFORMATION
  Report Type: 
  Country: None (occurrence: None)
  Receive Date: 20040210
  Receipt Date: 20040203
  Transmission Date: 20041129
  Serious: Yes (Hospitalization)
  Sender: FDA-Public Use
  Company Number: 200410430FR

PATIENT
  Age: 84 Year
  Sex: Female

DRUGS (6)
  1. FUROSEMIDE [Suspect]
     Dosage: 30 MG QW PO
     Route: 048
  2. ACETYLSALICYLATE SODIUM (CATALGINE) [Concomitant]
  3. SPIRONOLACTONE (SPIROCTAN) [Concomitant]
  4. FERROUS SULFATE (TARDYFERON) [Concomitant]
  5. CORDARONE [Concomitant]
  6. DIGOXIN [Concomitant]

REACTIONS (3)
  - DISORIENTATION [None]
  - HYPONATRAEMIA [None]
  - MENTAL IMPAIRMENT [None]
